FAERS Safety Report 17398357 (Version 1)
Quarter: 2020Q1

REPORT INFORMATION
  Report Type: Spontaneous
  Country: US (occurrence: US)
  Receive Date: 20200210
  Receipt Date: 20200210
  Transmission Date: 20200409
  Serious: No
  Sender: FDA-Public Use
  Company Number: US-VAYAPHARMA-2018-US-009252

PATIENT
  Age: 5 Year
  Sex: Male
  Weight: 15.88 kg

DRUGS (2)
  1. SMARTY PANTS VITAMINS [Concomitant]
  2. VAYARIN (NON-SPECIFIC) [Suspect]
     Active Substance: DOCONEXENT\ICOSAPENT\PHOSPHATIDYL SERINE
     Indication: ATTENTION DEFICIT/HYPERACTIVITY DISORDER
     Dosage: 1 CAPSULE DAILY
     Route: 048
     Dates: start: 20180501, end: 20180531

REACTIONS (4)
  - Unevaluable event [Unknown]
  - Blister [Unknown]
  - Rash [Unknown]
  - Cough [Unknown]

NARRATIVE: CASE EVENT DATE: 201805
